FAERS Safety Report 10569431 (Version 1)
Quarter: 2014Q4

REPORT INFORMATION
  Report Type: Spontaneous
  Country: US (occurrence: US)
  Receive Date: 20141106
  Receipt Date: 20141106
  Transmission Date: 20150529
  Serious: Yes (Other)
  Sender: FDA-Public Use
  Company Number: US-LUNDBECK-DKLU1105161

PATIENT
  Sex: Female

DRUGS (2)
  1. ONFI [Suspect]
     Active Substance: CLOBAZAM
     Indication: GENERALISED TONIC-CLONIC SEIZURE
     Dates: start: 20140513, end: 20140714
  2. ONFI [Suspect]
     Active Substance: CLOBAZAM
     Dates: start: 20140714, end: 20141006

REACTIONS (1)
  - Seizure [Unknown]
